FAERS Safety Report 7585480-5 (Version None)
Quarter: 2011Q2

REPORT INFORMATION
  Report Type: 
  Country: None (occurrence: None)
  Receive Date: 20110624
  Receipt Date: 20110620
  Transmission Date: 20111010
  Serious: Yes (Death)
  Sender: FDA-Public Use
  Company Number: 2011S1000196

PATIENT
  Sex: Male

DRUGS (1)
  1. INOMAX [Suspect]
     Dosage: 20 PPM, CONT, INH
     Route: 055
     Dates: start: 20110306, end: 20110306

REACTIONS (3)
  - MEDICAL DEVICE COMPLICATION [None]
  - OFF LABEL USE [None]
  - GENERAL PHYSICAL HEALTH DETERIORATION [None]
